FAERS Safety Report 25106692 (Version 1)
Quarter: 2025Q1

REPORT INFORMATION
  Report Type: Spontaneous
  Country: US (occurrence: None)
  Receive Date: 20250319
  Receipt Date: 20250319
  Transmission Date: 20250409
  Serious: Yes (Life-Threatening, Hospitalization)
  Sender: FDA-CTU
  Company Number: None

PATIENT
  Age: 71 Year
  Sex: Female
  Weight: 54.43 kg

DRUGS (16)
  1. ATEZOLIZUMAB [Suspect]
     Active Substance: ATEZOLIZUMAB
     Indication: HER2 positive breast cancer
     Route: 046
     Dates: start: 20191219, end: 20220628
  2. LIDOCAINE [Concomitant]
     Active Substance: LIDOCAINE
  3. Cholecalciferol, Vitamin D3, [Concomitant]
  4. VENLAFAXINE [Concomitant]
     Active Substance: VENLAFAXINE HYDROCHLORIDE
  5. Benzonatate (TESSALON) [Concomitant]
  6. FLONASE [Concomitant]
     Active Substance: FLUTICASONE PROPIONATE
  7. VENTOLIN HFA [Concomitant]
     Active Substance: ALBUTEROL SULFATE
  8. TIADYLT ER [Concomitant]
     Active Substance: DILTIAZEM HYDROCHLORIDE
  9. GABAPENTIN [Concomitant]
     Active Substance: GABAPENTIN
  10. Diphenoxylate-atropine (LOMOTIL) [Concomitant]
  11. TraMADoL (ULTRAM) [Concomitant]
  12. Colchicine (COLCRYS) [Concomitant]
  13. Hydralazine (APRESOLINE) [Concomitant]
  14. Spironolactone (ALDACTONE) [Concomitant]
  15. LIORESAL [Concomitant]
     Active Substance: BACLOFEN
  16. Nortriptyline (PAMELOR) [Concomitant]

REACTIONS (4)
  - Small intestinal obstruction [None]
  - Pyrexia [None]
  - Dyspnoea [None]
  - Chills [None]

NARRATIVE: CASE EVENT DATE: 20250310
